FAERS Safety Report 4992311-6 (Version None)
Quarter: 2006Q1

REPORT INFORMATION
  Report Type: 
  Country: None (occurrence: None)
  Receive Date: 20060314
  Receipt Date: 20051219
  Transmission Date: 20060701
  Serious: Yes (Death, Hospitalization, Other)
  Sender: FDA-Public Use
  Company Number: 2005-01120

PATIENT
  Age: 74 Year
  Sex: Male
  Weight: 77 kg

DRUGS (11)
  1. VELCADE [Suspect]
     Indication: MANTLE CELL LYMPHOMA
     Dosage: 2.50 MG , IV BOLUS; SEE IMAGE
     Route: 040
     Dates: start: 20050104, end: 20050224
  2. VELCADE [Suspect]
     Indication: MANTLE CELL LYMPHOMA
     Dosage: 2.50 MG , IV BOLUS; SEE IMAGE
     Route: 040
     Dates: start: 20050503, end: 20050512
  3. VELCADE [Suspect]
     Indication: MANTLE CELL LYMPHOMA
     Dosage: 2.50 MG , IV BOLUS; SEE IMAGE
     Route: 040
     Dates: start: 20050523, end: 20050526
  4. PROSCAR [Concomitant]
  5. FOLIC ACID [Concomitant]
  6. LASIX [Concomitant]
  7. OXYCODONE (OXYCODONE) [Concomitant]
  8. POTASSIUM (POTASSIUM) [Concomitant]
  9. FLOMAX [Concomitant]
  10. EFFEXOR [Concomitant]
  11. TOPROL-XL [Concomitant]

REACTIONS (4)
  - CARDIAC FAILURE CONGESTIVE [None]
  - CHEST PAIN [None]
  - CORONARY ARTERY DISEASE [None]
  - DYSPNOEA [None]
